FAERS Safety Report 4861865-2 (Version None)
Quarter: 2005Q4

REPORT INFORMATION
  Report Type: 
  Country: None (occurrence: None)
  Receive Date: 20051130
  Receipt Date: 20050103
  Transmission Date: 20060501
  Serious: Yes (Hospitalization)
  Sender: FDA-Public Use
  Company Number: 2004090301

PATIENT
  Age: 27 Year
  Sex: Female

DRUGS (20)
  1. LINEZOLID TABLET (LINEZOLID) [Suspect]
     Indication: STAPHYLOCOCCAL INFECTION
     Dosage: 1200 MG (600 MG, TWICE DAILY), ORAL
     Route: 048
     Dates: start: 20040103, end: 20041020
  2. LINEZOLID TABLET (LINEZOLID) [Suspect]
     Indication: STAPHYLOCOCCAL INFECTION
     Dosage: 1200 MG (600 MG, TWICE DAILY), ORAL
     Route: 048
     Dates: start: 20041028, end: 20041109
  3. CYCLOSPORINE [Concomitant]
  4. VORICONAZOLE (VORICONAZOLE) [Concomitant]
  5. PANCRELIPASE (PANCRELIPASE) [Concomitant]
  6. ALENDRONATE SODIUM [Concomitant]
  7. LABETALOL HCL [Concomitant]
  8. BACTRIM [Concomitant]
  9. NIZATIDINE [Concomitant]
  10. MUPIROCIN (MUPIROCIN) [Concomitant]
  11. PREDNISONE [Concomitant]
  12. GABAPENTIN [Concomitant]
  13. LANSOPRAZOLE [Concomitant]
  14. CALCIUM (CALCIUM) [Concomitant]
  15. BUDESONIDE [Concomitant]
  16. TOBRAMYCIN [Concomitant]
  17. DARBEPOETIN ALFA (DARBEPOETIN ALFA) [Concomitant]
  18. IRON (IRON) [Concomitant]
  19. LEVOSALBUTAMOL (LEVOSALBUTAMOL) [Concomitant]
  20. VALGANCICLOVIR HYDROCHLORIDE (VALGANCICLOVIR HYDROCHLORIDE) [Concomitant]

REACTIONS (1)
  - NEUROPATHY PERIPHERAL [None]
